FAERS Safety Report 7062926-2 (Version None)
Quarter: 2010Q4

REPORT INFORMATION
  Report Type: 
  Country: None (occurrence: None)
  Receive Date: 20101026
  Receipt Date: 20101018
  Transmission Date: 20110411
  Serious: Yes (Hospitalization)
  Sender: FDA-Public Use
  Company Number: BR-ABBOTT-10P-020-0655151-00

PATIENT
  Sex: Female
  Weight: 72 kg

DRUGS (11)
  1. HUMIRA [Suspect]
     Indication: RHEUMATOID ARTHRITIS
     Route: 058
     Dates: start: 20071028
  2. HUMIRA [Suspect]
  3. HUMIRA [Suspect]
  4. CORTISONE [Suspect]
     Indication: RHEUMATOID ARTHRITIS
     Route: 048
     Dates: start: 20070101
  5. CORTISONE [Suspect]
  6. DIPROSPAN [Suspect]
     Indication: PRODUCT USED FOR UNKNOWN INDICATION
     Route: 030
  7. ENALAPRIL MALEATE [Concomitant]
     Indication: HYPERTENSION
     Route: 048
  8. METHOTREXATE [Concomitant]
     Indication: IMMUNOSUPPRESSION
     Route: 048
     Dates: start: 20070101
  9. OMEPRAZOLE [Concomitant]
     Indication: GASTRIC DISORDER
     Route: 048
  10. PURAN T4 [Concomitant]
     Indication: THYROID THERAPY
     Route: 048
  11. PREDNISONE [Concomitant]
     Indication: PAIN
     Route: 048

REACTIONS (8)
  - ARTHRALGIA [None]
  - DIABETES MELLITUS INADEQUATE CONTROL [None]
  - IMMUNODEFICIENCY [None]
  - MALAISE [None]
  - PNEUMONIA [None]
  - PYREXIA [None]
  - SWELLING [None]
  - WEIGHT INCREASED [None]
